FAERS Safety Report 7029647-3 (Version None)
Quarter: 2010Q4

REPORT INFORMATION
  Report Type: 
  Country: None (occurrence: None)
  Receive Date: 20101005
  Receipt Date: 20100923
  Transmission Date: 20110411
  Serious: Yes (Other)
  Sender: FDA-Public Use
  Company Number: CA-MERCK-1009USA04941

PATIENT
  Age: 63 Year
  Sex: Female
  Weight: 91 kg

DRUGS (4)
  1. ZOCOR [Suspect]
     Route: 048
  2. COVERSYL (PERINDOPRIL ARGININE) [Concomitant]
     Route: 048
  3. AVAPRO [Concomitant]
     Route: 065
  4. AVALIDE [Concomitant]
     Route: 065

REACTIONS (4)
  - MUSCULAR WEAKNESS [None]
  - MYALGIA [None]
  - PAIN [None]
  - PAIN IN EXTREMITY [None]
